FAERS Safety Report 7878283-5 (Version None)
Quarter: 2011Q4

REPORT INFORMATION
  Report Type: 
  Country: None (occurrence: None)
  Receive Date: 20111101
  Receipt Date: 20111020
  Transmission Date: 20120403
  Serious: Yes (Hospitalization, Other)
  Sender: FDA-Public Use
  Company Number: US-JNJFOC-20111009433

PATIENT
  Sex: Female

DRUGS (1)
  1. REMICADE [Suspect]
     Indication: RHEUMATOID ARTHRITIS
     Route: 042

REACTIONS (9)
  - OESOPHAGEAL MASS [None]
  - RENAL NEOPLASM [None]
  - HIP FRACTURE [None]
  - PULSE ABSENT [None]
  - ADVERSE EVENT [None]
  - GALLBLADDER DISORDER [None]
  - STAPHYLOCOCCAL INFECTION [None]
  - LYMPHADENOPATHY [None]
  - LYMPHATIC SYSTEM NEOPLASM [None]
